FAERS Safety Report 25300205 (Version 3)
Quarter: 2025Q3

REPORT INFORMATION
  Report Type: Spontaneous
  Country: GB (occurrence: GB)
  Receive Date: 20250512
  Receipt Date: 20250724
  Transmission Date: 20251020
  Serious: Yes (Death, Hospitalization)
  Sender: MYLAN
  Company Number: GB-MYLANLABS-2025M1039098

PATIENT
  Sex: Male

DRUGS (2)
  1. CLOZARIL [Suspect]
     Active Substance: CLOZAPINE
     Indication: Schizophrenia
  2. CLOZARIL [Suspect]
     Active Substance: CLOZAPINE

REACTIONS (4)
  - Death [Fatal]
  - Chronic obstructive pulmonary disease [Unknown]
  - Cardiac failure [Unknown]
  - Anaemia [Unknown]

NARRATIVE: CASE EVENT DATE: 20250721
